FAERS Safety Report 17239383 (Version 5)
Quarter: 2020Q3

REPORT INFORMATION
  Report Type: Spontaneous
  Country: FR (occurrence: FR)
  Receive Date: 20200106
  Receipt Date: 20200716
  Transmission Date: 20201102
  Serious: No
  Sender: FDA-Public Use
  Company Number: FR-009507513-1912FRA012577

PATIENT
  Sex: Male

DRUGS (2)
  1. SOLUPRED [Concomitant]
     Dosage: UNK
  2. CELESTENE (BETAMETHASONE) [Suspect]
     Active Substance: BETAMETHASONE
     Dosage: UNK
     Route: 048

REACTIONS (1)
  - Overdose [Unknown]

NARRATIVE: CASE EVENT DATE: 20191114
